FAERS Safety Report 5031109-X (Version None)
Quarter: 2006Q2

REPORT INFORMATION
  Report Type: 
  Country: None (occurrence: None)
  Receive Date: 20060504
  Receipt Date: 20060118
  Transmission Date: 20061013
  Serious: Yes (Hospitalization)
  Sender: FDA-Public Use
  Company Number: VNL_0004_2006

PATIENT
  Age: 76 Year
  Sex: Male
  Weight: 58.9676 kg

DRUGS (12)
  1. APOKYN [Suspect]
     Indication: PARKINSON'S DISEASE
     Dosage: 2 MG ONCE SC
     Route: 058
     Dates: start: 20040909, end: 20040909
  2. CARBIDOPA AND LEVODOPA [Concomitant]
  3. ROPINIZOLE [Concomitant]
  4. HYDROCHLORIDE [Concomitant]
  5. ENTACAPONE [Concomitant]
  6. VITAMIN E [Concomitant]
  7. ASCORBIC ACID [Concomitant]
  8. FOLIC ACID [Concomitant]
  9. VITAMINS [Concomitant]
  10. STOOL SOFTENER [Concomitant]
  11. CLONAZEPAM [Concomitant]
  12. IBUPROFEN [Concomitant]

REACTIONS (5)
  - ASTHENIA [None]
  - BLOOD PRESSURE DECREASED [None]
  - CHEST PAIN [None]
  - DRUG INEFFECTIVE [None]
  - LOWER RESPIRATORY TRACT INFECTION [None]
